FAERS Safety Report 23068914 (Version 1)
Quarter: 2023Q4

REPORT INFORMATION
  Report Type: Spontaneous
  Country: US (occurrence: None)
  Receive Date: 20231014
  Receipt Date: 20231014
  Transmission Date: 20240110
  Serious: Yes (Hospitalization)
  Sender: FDA-Public Use
  Company Number: None

PATIENT
  Sex: Female
  Weight: 68 kg

DRUGS (2)
  1. GEMCITABINE HYDROCHLORIDE [Suspect]
     Active Substance: GEMCITABINE HYDROCHLORIDE
     Dates: end: 20230509
  2. PACLITAXEL [Suspect]
     Active Substance: PACLITAXEL
     Dates: end: 20230509

REACTIONS (8)
  - Nausea [None]
  - Ascites [None]
  - Abdominal distension [None]
  - Constipation [None]
  - Urinary retention [None]
  - Urinary hesitation [None]
  - Asthenia [None]
  - Blood creatinine increased [None]

NARRATIVE: CASE EVENT DATE: 20230607
